FAERS Safety Report 6834818-2 (Version None)
Quarter: 2010Q3

REPORT INFORMATION
  Report Type: 
  Country: None (occurrence: None)
  Receive Date: 20100712
  Receipt Date: 20080209
  Transmission Date: 20110219
  Serious: No
  Sender: FDA-Public Use
  Company Number: US-PFIZER INC-2007027392

PATIENT
  Sex: Female
  Weight: 75.75 kg

DRUGS (8)
  1. CHANTIX [Suspect]
     Indication: SMOKING CESSATION THERAPY
     Dates: start: 20070101
  2. HYDROCODONE BITARTRATE [Concomitant]
  3. TYLENOL (CAPLET) [Concomitant]
  4. DRUG, UNSPECIFIED [Concomitant]
  5. PLAVIX [Concomitant]
     Indication: GASTROOESOPHAGEAL REFLUX DISEASE
  6. PREVACID [Concomitant]
  7. LASIX [Concomitant]
  8. ANTIDEPRESSANTS [Concomitant]
     Indication: DEPRESSION

REACTIONS (3)
  - ABNORMAL DREAMS [None]
  - INCORRECT DRUG DOSAGE FORM ADMINISTERED [None]
  - TOBACCO USER [None]
